FAERS Safety Report 5642248-4 (Version None)
Quarter: 2008Q1

REPORT INFORMATION
  Report Type: 
  Country: None (occurrence: None)
  Receive Date: 20080225
  Receipt Date: 20080128
  Transmission Date: 20080703
  Serious: Yes (Other)
  Sender: FDA-Public Use
  Company Number: TRP_01040_2008

PATIENT
  Sex: Male
  Weight: 102.5129 kg

DRUGS (12)
  1. INFERGEN [Suspect]
     Indication: HEPATITIS C
     Dosage: (15 UG QD SUBCUTANEOUS), (15 UG QD SUBCUTANEOUS)
     Route: 058
     Dates: start: 20070412, end: 20070425
  2. INFERGEN [Suspect]
     Indication: HEPATITIS C
     Dosage: (15 UG QD SUBCUTANEOUS), (15 UG QD SUBCUTANEOUS)
     Route: 058
     Dates: start: 20070621, end: 20070703
  3. RIBAVIRIN [Suspect]
     Indication: HEPATITIS C
     Dosage: (600 MG BID ORAL), (600 MG BID ORAL)
     Route: 048
     Dates: start: 20070412, end: 20070425
  4. RIBAVIRIN [Suspect]
     Indication: HEPATITIS C
     Dosage: (600 MG BID ORAL), (600 MG BID ORAL)
     Route: 048
     Dates: start: 20070621, end: 20070703
  5. ASPIRIN [Concomitant]
  6. TOPROL-XL [Concomitant]
  7. LISINOPRIL [Concomitant]
  8. ZOLOFT [Concomitant]
  9. PLAVIX [Concomitant]
  10. AMBIEN CR [Concomitant]
  11. XANAX [Concomitant]
  12. NORVASC [Concomitant]

REACTIONS (29)
  - ASPARTATE AMINOTRANSFERASE INCREASED [None]
  - BILIRUBIN CONJUGATED INCREASED [None]
  - BLOOD CHLORIDE INCREASED [None]
  - BLOOD CREATININE INCREASED [None]
  - BLOOD GLUCOSE INCREASED [None]
  - BLOOD IRON INCREASED [None]
  - BLOOD TRIGLYCERIDES INCREASED [None]
  - BLOOD UREA INCREASED [None]
  - BLOOD URIC ACID INCREASED [None]
  - CARBON DIOXIDE DECREASED [None]
  - DECREASED APPETITE [None]
  - DEHYDRATION [None]
  - DIARRHOEA [None]
  - FATIGUE [None]
  - FLANK PAIN [None]
  - GAMMA-GLUTAMYLTRANSFERASE INCREASED [None]
  - GLOBULINS INCREASED [None]
  - GLOMERULAR FILTRATION RATE DECREASED [None]
  - HAEMATOCRIT DECREASED [None]
  - HAEMOGLOBIN DECREASED [None]
  - HIGH DENSITY LIPOPROTEIN DECREASED [None]
  - INSOMNIA [None]
  - MEAN CELL HAEMOGLOBIN INCREASED [None]
  - NAUSEA [None]
  - RED BLOOD CELL COUNT DECREASED [None]
  - RENAL DISORDER [None]
  - TOTAL CHOLESTEROL/HDL RATIO DECREASED [None]
  - VOMITING [None]
  - WEIGHT DECREASED [None]
